FAERS Safety Report 7934133-X (Version None)
Quarter: 2011Q4

REPORT INFORMATION
  Report Type: 
  Country: None (occurrence: None)
  Receive Date: 20111116
  Receipt Date: 20111108
  Transmission Date: 20120403
  Serious: Yes (Hospitalization)
  Sender: FDA-Public Use
  Company Number: 2011SP042008

PATIENT
  Age: 76 Year
  Sex: Male

DRUGS (12)
  1. MIRTAZAPINE [Suspect]
     Indication: DEPRESSION
     Dosage: 15;30;90;60;7.5 MG, QD, PO
     Route: 048
     Dates: start: 20091215, end: 20091217
  2. MIRTAZAPINE [Suspect]
     Indication: DEPRESSION
     Dosage: 15;30;90;60;7.5 MG, QD, PO
     Route: 048
     Dates: start: 20110819, end: 20111020
  3. MIRTAZAPINE [Suspect]
     Indication: DEPRESSION
     Dosage: 15;30;90;60;7.5 MG, QD, PO
     Route: 048
     Dates: start: 20100413, end: 20110818
  4. MIRTAZAPINE [Suspect]
     Indication: DEPRESSION
     Dosage: 15;30;90;60;7.5 MG, QD, PO
     Route: 048
     Dates: start: 20091208, end: 20091214
  5. MIRTAZAPINE [Suspect]
     Indication: DEPRESSION
     Dosage: 15;30;90;60;7.5 MG, QD, PO
     Route: 048
     Dates: start: 20091218, end: 20100208
  6. MIRTAZAPINE [Suspect]
     Indication: DEPRESSION
     Dosage: 15;30;90;60;7.5 MG, QD, PO
     Route: 048
     Dates: start: 20100209, end: 20100403
  7. MIRTAZAPINE [Suspect]
     Indication: DEPRESSION
     Dosage: 15;30;90;60;7.5 MG, QD, PO
     Route: 048
     Dates: start: 20111021
  8. TRICYCLIC [Concomitant]
  9. SELECTIVE SEROTONIN [Concomitant]
  10. PRAMIPEXOLE DIHYDROCHLORIDE [Concomitant]
  11. ANTIDEPRESSANTS [Concomitant]
  12. REUPTAKE INHIBITORS [Concomitant]

REACTIONS (6)
  - GAIT DISTURBANCE [None]
  - DEPRESSION [None]
  - CONDITION AGGRAVATED [None]
  - PARKINSONISM [None]
  - MUSCLE ATROPHY [None]
  - UNEVALUABLE EVENT [None]
